FAERS Safety Report 10303951 (Version 2)
Quarter: 2014Q3

REPORT INFORMATION
  Report Type: Report from Study
  Country: BR (occurrence: BR)
  Receive Date: 20140714
  Receipt Date: 20140812
  Transmission Date: 20150326
  Serious: Yes (Hospitalization, Other)
  Sender: FDA-Public Use
  Company Number: PHHY2014BR086160

PATIENT
  Age: 59 Year
  Sex: Female
  Weight: 82 kg

DRUGS (3)
  1. DIOVAN [Suspect]
     Active Substance: VALSARTAN
     Indication: HYPERTENSION
     Dosage: 1 DF (80 MG), 12 TO 12 HOURS
     Route: 048
     Dates: end: 20140710
  2. GLICLAZIDE [Concomitant]
     Active Substance: GLICLAZIDE
     Indication: DIABETES MELLITUS
     Dosage: UNK UKN, UNK
  3. METFORMIN [Concomitant]
     Active Substance: METFORMIN HYDROCHLORIDE
     Indication: DIABETES MELLITUS
     Dosage: UNK UKN, UNK

REACTIONS (9)
  - Skin necrosis [Recovered/Resolved]
  - Monoplegia [Recovering/Resolving]
  - Device related infection [Recovered/Resolved]
  - Breast discharge infected [Recovered/Resolved]
  - Pain [Unknown]
  - Breast cancer [Recovering/Resolving]
  - Renal mass [Unknown]
  - Nervousness [Recovered/Resolved]
  - Hypertension [Recovering/Resolving]

NARRATIVE: CASE EVENT DATE: 2006
